FAERS Safety Report 9012047 (Version 1)
Quarter: 2012Q4

REPORT INFORMATION
  Report Type: Spontaneous
  Country: DE (occurrence: None)
  Receive Date: 20121228
  Receipt Date: 20121228
  Transmission Date: 20130627
  Serious: Yes (Other)
  Sender: FDA-Public Use
  Company Number: DE-DEXPHARM-20121931

PATIENT
  Sex: Female

DRUGS (4)
  1. DICLOFENAC [Suspect]
     Indication: HEADACHE
     Route: 064
  2. HYPNOREX [Suspect]
     Route: 064
     Dates: start: 20110504, end: 20120118
  3. VENLAFAXINE [Suspect]
     Route: 064
     Dates: start: 20110504, end: 20120118
  4. DOPEGYT [Concomitant]

REACTIONS (8)
  - Atrial septal defect [None]
  - Neonatal respiratory distress syndrome [None]
  - Right ventricular hypertrophy [None]
  - Foetal exposure during pregnancy [None]
  - Caesarean section [None]
  - Foetal heart rate deceleration [None]
  - Foetal acidosis [None]
  - Meconium in amniotic fluid [None]
